FAERS Safety Report 8130232-0 (Version None)
Quarter: 2012Q1

REPORT INFORMATION
  Report Type: 
  Country: None (occurrence: None)
  Receive Date: 20120210
  Receipt Date: 20120203
  Transmission Date: 20120608
  Serious: Yes (Hospitalization)
  Sender: FDA-Public Use
  Company Number: PHHY2012BR009991

PATIENT
  Age: 73 Year
  Sex: Female

DRUGS (1)
  1. EXELON [Suspect]
     Dosage: 9.5MG\24H (18MG\10CM2)
     Route: 062
     Dates: start: 20110501, end: 20110801

REACTIONS (2)
  - MEMORY IMPAIRMENT [None]
  - TREMOR [None]
